FAERS Safety Report 7474283-8 (Version None)
Quarter: 2011Q2

REPORT INFORMATION
  Report Type: 
  Country: None (occurrence: None)
  Receive Date: 20110511
  Receipt Date: 20110505
  Transmission Date: 20111010
  Serious: Yes (Hospitalization)
  Sender: FDA-Public Use
  Company Number: GB-AMGEN-GBRSP2011023657

PATIENT

DRUGS (5)
  1. CYCLOPHOSPHAMIDE MONOHYDRATE [Concomitant]
  2. DOCETAXEL [Concomitant]
  3. NEULASTA [Suspect]
     Indication: CHEMOTHERAPY
  4. FLUOROURACIL                       /00098802/ [Concomitant]
  5. EPIRUBICIN [Concomitant]

REACTIONS (2)
  - NEUTROPENIA [None]
  - FEBRILE NEUTROPENIA [None]
